FAERS Safety Report 20425330 (Version 1)
Quarter: 2022Q1

REPORT INFORMATION
  Report Type: Report from Study
  Country: US (occurrence: US)
  Receive Date: 20220204
  Receipt Date: 20220204
  Transmission Date: 20220423
  Serious: No
  Sender: FDA-Public Use
  Company Number: US-EXELIXIS-CABO-21038264

PATIENT
  Age: 59 Year
  Sex: Female

DRUGS (2)
  1. CABOMETYX [Suspect]
     Active Substance: CABOZANTINIB S-MALATE
     Indication: Malignant neoplasm of renal pelvis
     Dosage: 60 MG, QD
     Route: 048
     Dates: start: 20210218
  2. CABOMETYX [Suspect]
     Active Substance: CABOZANTINIB S-MALATE
     Dosage: 40 MG, QD
     Route: 048

REACTIONS (13)
  - Insomnia [Unknown]
  - Erythema [Unknown]
  - Red blood cell count increased [Not Recovered/Not Resolved]
  - Bite [Not Recovered/Not Resolved]
  - Peripheral swelling [Unknown]
  - Blister [Unknown]
  - Pain [Unknown]
  - Haemoglobin increased [Not Recovered/Not Resolved]
  - Bone pain [Unknown]
  - Rash [Unknown]
  - Pain in extremity [Unknown]
  - Sunburn [Unknown]
  - Off label use [Unknown]

NARRATIVE: CASE EVENT DATE: 20210201
